FAERS Safety Report 18292507 (Version 1)
Quarter: 2020Q3

REPORT INFORMATION
  Report Type: Spontaneous
  Country: US (occurrence: US)
  Receive Date: 20200921
  Receipt Date: 20200921
  Transmission Date: 20201103
  Serious: No
  Sender: FDA-Public Use
  Company Number: None

PATIENT
  Age: 53 Year
  Sex: Female

DRUGS (11)
  1. ELIQUIS [Concomitant]
     Active Substance: APIXABAN
  2. ZOFRAN [Concomitant]
     Active Substance: ONDANSETRON HYDROCHLORIDE
  3. GNP STOOL SOFTENER/STIMUL [Concomitant]
  4. GRANIX [Suspect]
     Active Substance: TBO-FILGRASTIM
     Indication: BREAST CANCER FEMALE
     Route: 058
  5. MAGNESIUM OXIDE. [Concomitant]
     Active Substance: MAGNESIUM OXIDE
  6. LYNPARZA [Suspect]
     Active Substance: OLAPARIB
     Indication: BREAST CANCER FEMALE
     Route: 048
  7. OXYCODONE HYDROCHLORIDE. [Concomitant]
     Active Substance: OXYCODONE HYDROCHLORIDE
  8. METOLAZONE. [Concomitant]
     Active Substance: METOLAZONE
  9. OMEPRAZOLE. [Concomitant]
     Active Substance: OMEPRAZOLE
  10. TORSEMIDE. [Concomitant]
     Active Substance: TORSEMIDE
  11. POTASSIUM [Concomitant]
     Active Substance: POTASSIUM

REACTIONS (5)
  - Atrial fibrillation [None]
  - Fluid retention [None]
  - Dialysis [None]
  - Hepatic cirrhosis [None]
  - Blood potassium increased [None]
